FAERS Safety Report 7519409-2 (Version None)
Quarter: 2011Q2

REPORT INFORMATION
  Report Type: 
  Country: None (occurrence: None)
  Receive Date: 20110602
  Receipt Date: 20110518
  Transmission Date: 20111010
  Serious: Yes (Hospitalization)
  Sender: FDA-Public Use
  Company Number: US-ASTRAZENECA-2011SE30391

PATIENT
  Age: 55 Year
  Sex: Male

DRUGS (2)
  1. CARDIAC MEDS [Concomitant]
  2. SEROQUEL [Suspect]
     Indication: SCHIZOPHRENIA
     Route: 048

REACTIONS (1)
  - ORTHOSTATIC HYPERTENSION [None]
